FAERS Safety Report 25914120 (Version 1)
Quarter: 2025Q4

REPORT INFORMATION
  Report Type: Spontaneous
  Country: CN (occurrence: CN)
  Receive Date: 20251013
  Receipt Date: 20251013
  Transmission Date: 20260117
  Serious: Yes (Life-Threatening, Hospitalization, Other)
  Sender: BAYER HEALTHCARE PHARMACEUTICALS INC.
  Company Number: CN-BAYER-2025A134818

PATIENT
  Age: 53 Year
  Sex: Male
  Weight: 55 kg

DRUGS (6)
  1. KERENDIA [Suspect]
     Active Substance: FINERENONE
     Indication: Chronic kidney disease
     Dosage: 10 MG, QD
     Route: 048
     Dates: start: 20250820, end: 20250827
  2. KERENDIA [Suspect]
     Active Substance: FINERENONE
     Indication: Nephrotic syndrome
  3. Insulin aspart 50 [Concomitant]
     Dosage: 8 U IN THE MORNING AND 6 U IN THE EVENING BEFORE MEALS, BID
     Route: 058
  4. HERBALS [Concomitant]
     Active Substance: HERBALS
     Dosage: 4 DF, TID
     Route: 048
  5. FUROSEMIDE [Concomitant]
     Active Substance: FUROSEMIDE
     Indication: Diuretic therapy
     Dosage: UNK
     Route: 048
     Dates: end: 20250819
  6. FUROSEMIDE [Concomitant]
     Active Substance: FUROSEMIDE
     Indication: Diuretic therapy
     Dosage: 60 MG, QD
     Route: 048
     Dates: start: 20250820

REACTIONS (3)
  - Hyperkalaemia [Recovered/Resolved]
  - Product prescribing issue [None]
  - Product use issue [None]

NARRATIVE: CASE EVENT DATE: 20250820
